FAERS Safety Report 15865104 (Version 1)
Quarter: 2019Q1

REPORT INFORMATION
  Report Type: Other
  Country: ES (occurrence: ES)
  Receive Date: 20190124
  Receipt Date: 20190124
  Transmission Date: 20190417
  Serious: Yes (Other)
  Sender: FDA-Public Use
  Company Number: ES-CELLTRION INC.-2019ES017989

PATIENT

DRUGS (3)
  1. RITUXIMAB (UNKNOWN) [Suspect]
     Active Substance: RITUXIMAB
     Indication: NON-HODGKIN^S LYMPHOMA
     Dosage: 1/4SEMANAS
     Route: 042
     Dates: start: 20180601
  2. ALENDRONICO ACIDO (2781A) [Concomitant]
     Indication: OSTEOPOROSIS
     Dosage: 1/7DIAS
     Dates: start: 20170501
  3. DEFERASIROX (8052A) [Concomitant]
     Indication: IRON OVERLOAD
     Dosage: 720MG/24H
     Dates: start: 20160316

REACTIONS (1)
  - Psoriasis [Not Recovered/Not Resolved]

NARRATIVE: CASE EVENT DATE: 20180614
